FAERS Safety Report 8066425-0 (Version None)
Quarter: 2012Q1

REPORT INFORMATION
  Report Type: 
  Country: None (occurrence: None)
  Receive Date: 20120124
  Receipt Date: 20120116
  Transmission Date: 20120608
  Serious: Yes (Hospitalization, Other)
  Sender: FDA-Public Use
  Company Number: US-JNJFOC-20111106590

PATIENT
  Sex: Male
  Weight: 85.28 kg

DRUGS (13)
  1. REMICADE [Suspect]
     Route: 042
     Dates: start: 20070621
  2. VICODIN [Concomitant]
     Route: 065
  3. REMICADE [Suspect]
     Indication: RHEUMATOID ARTHRITIS
     Route: 042
     Dates: start: 20090615
  4. REMICADE [Suspect]
     Dosage: 7.1 MG/KG
     Route: 042
     Dates: start: 20111205
  5. REMICADE [Suspect]
     Route: 042
     Dates: start: 20110929
  6. CELEBREX [Concomitant]
     Indication: ARTHRITIS
     Route: 065
  7. GLUCOSAMINE [Concomitant]
     Route: 065
  8. SYNTHROID [Concomitant]
     Indication: HYPOTHYROIDISM
     Route: 065
  9. VITAMIN D [Concomitant]
     Route: 065
  10. CALCIUM [Concomitant]
     Route: 065
  11. CHONDROITIN [Concomitant]
     Route: 065
  12. ASPIRIN [Concomitant]
     Route: 065
  13. FOLIC ACID [Concomitant]
     Route: 065

REACTIONS (7)
  - OSTEOMYELITIS [None]
  - ASTHENIA [None]
  - FALL [None]
  - MUSCULOSKELETAL PAIN [None]
  - HYPERKERATOSIS [None]
  - GANGRENE [None]
  - WEIGHT DECREASED [None]
